FAERS Safety Report 12668175 (Version 7)
Quarter: 2016Q4

REPORT INFORMATION
  Report Type: Report from Study
  Country: JP (occurrence: JP)
  Receive Date: 20160819
  Receipt Date: 20161223
  Transmission Date: 20170207
  Serious: Yes (Hospitalization, Other)
  Sender: FDA-Public Use
  Company Number: JP-AMGEN-JPNCT2016085356

PATIENT
  Age: 64 Year
  Sex: Female
  Weight: 55.9 kg

DRUGS (25)
  1. CALCIUM LEVOFOLINATE [Suspect]
     Active Substance: LEVOLEUCOVORIN CALCIUM
     Dosage: UNK UNK, Q2WEEKS
     Route: 041
     Dates: start: 20160907
  2. PANITUMUMAB [Suspect]
     Active Substance: PANITUMUMAB
     Dosage: 320 MG, Q2WK
     Route: 041
     Dates: start: 20160329, end: 20160329
  3. ELPLAT [Suspect]
     Active Substance: OXALIPLATIN
     Dosage: 65 MG/M2, Q2WEEKS
     Route: 041
     Dates: start: 20160329, end: 20160329
  4. CALCIUM LEVOFOLINATE [Suspect]
     Active Substance: LEVOLEUCOVORIN CALCIUM
     Dosage: UNK UNK, Q2WEEKS
     Route: 041
     Dates: start: 20160329, end: 20160329
  5. 5-FU                               /00098801/ [Suspect]
     Active Substance: FLUOROURACIL
     Dosage: 200 MG/M2, Q2WEEKS
     Route: 040
     Dates: start: 20161019
  6. CALCIUM LEVOFOLINATE [Suspect]
     Active Substance: LEVOLEUCOVORIN CALCIUM
     Dosage: UNK UNK, Q2WEEKS
     Route: 041
     Dates: start: 20160426, end: 20160720
  7. DEXART [Suspect]
     Active Substance: DEXAMETHASONE SODIUM PHOSPHATE
     Indication: PROPHYLAXIS OF NAUSEA AND VOMITING
     Dosage: 8.25 MG, Q2WEEKS
     Route: 041
     Dates: start: 20160224
  8. PANITUMUMAB [Suspect]
     Active Substance: PANITUMUMAB
     Dosage: 320 MG, Q2WK
     Route: 041
     Dates: start: 20161019, end: 20161122
  9. ELPLAT [Suspect]
     Active Substance: OXALIPLATIN
     Indication: COLON CANCER
     Dosage: 120 MG, Q2WEEKS
     Route: 041
     Dates: start: 20160224, end: 20160224
  10. 5-FU                               /00098801/ [Suspect]
     Active Substance: FLUOROURACIL
     Dosage: 200 MG/M2, Q2WK
     Route: 040
     Dates: start: 20160329, end: 20160329
  11. PANITUMUMAB [Suspect]
     Active Substance: PANITUMUMAB
     Indication: COLON CANCER
     Dosage: 320 MG, Q2WK
     Route: 041
     Dates: start: 20160224, end: 20160224
  12. DECADRON                           /00016002/ [Suspect]
     Active Substance: DEXAMETHASONE
     Indication: PROPHYLAXIS OF NAUSEA AND VOMITING
     Dosage: 4 MG, Q2WK
     Route: 048
     Dates: start: 20160329
  13. PANITUMUMAB [Suspect]
     Active Substance: PANITUMUMAB
     Dosage: 320 MG, Q2WK
     Route: 041
     Dates: start: 20160426, end: 20160720
  14. CALCIUM LEVOFOLINATE [Suspect]
     Active Substance: LEVOLEUCOVORIN CALCIUM
     Indication: COLON CANCER
     Dosage: 300 MG, Q2WEEKS
     Route: 041
     Dates: start: 20160224, end: 20160224
  15. 5-FU                               /00098801/ [Suspect]
     Active Substance: FLUOROURACIL
     Dosage: 2000 MG/M2, Q2WK
     Route: 041
     Dates: start: 20160329, end: 20160329
  16. 5-FU                               /00098801/ [Suspect]
     Active Substance: FLUOROURACIL
     Dosage: 1600 MG/M2, Q2WEEKS
     Route: 041
     Dates: start: 20160426, end: 20160720
  17. 5-FU                               /00098801/ [Suspect]
     Active Substance: FLUOROURACIL
     Dosage: 200 MG/M2, Q2WEEKS
     Route: 040
     Dates: start: 20160608, end: 20160608
  18. PANITUMUMAB [Suspect]
     Active Substance: PANITUMUMAB
     Dosage: 320 MG, Q2WK
     Route: 041
     Dates: start: 20160907, end: 20160907
  19. 5-FU                               /00098801/ [Suspect]
     Active Substance: FLUOROURACIL
     Indication: COLON CANCER
     Dosage: 600 MG, Q2WK
     Route: 040
     Dates: start: 20160224, end: 20160224
  20. 5-FU                               /00098801/ [Suspect]
     Active Substance: FLUOROURACIL
     Dosage: 1600 MG/M2, Q2WEEKS
     Route: 041
     Dates: start: 20160907
  21. DEXART [Suspect]
     Active Substance: DEXAMETHASONE SODIUM PHOSPHATE
     Dosage: UNK UNK, Q2WEEKS
     Route: 041
  22. CALONAL [Concomitant]
     Active Substance: ACETAMINOPHEN
     Dosage: 400 MG, QID
     Route: 048
     Dates: start: 20160224
  23. ELPLAT [Suspect]
     Active Substance: OXALIPLATIN
     Dosage: 50 MG/M2, Q2WEEKS
     Route: 041
     Dates: start: 20160426, end: 20160720
  24. ELPLAT [Suspect]
     Active Substance: OXALIPLATIN
     Dosage: 50 MG/M2, Q2WEEKS
     Route: 041
     Dates: start: 20160907
  25. 5-FU                               /00098801/ [Suspect]
     Active Substance: FLUOROURACIL
     Dosage: 3600 MG, Q2WK
     Route: 041
     Dates: start: 20160224, end: 20160224

REACTIONS (18)
  - Peripheral sensory neuropathy [Unknown]
  - Aspartate aminotransferase increased [Recovered/Resolved]
  - Palmar-plantar erythrodysaesthesia syndrome [Recovered/Resolved]
  - Pruritus [Unknown]
  - Dysgeusia [Unknown]
  - Blood alkaline phosphatase increased [Unknown]
  - Osteoporosis [Recovering/Resolving]
  - Paronychia [Unknown]
  - Hypomagnesaemia [Unknown]
  - Decreased appetite [Recovered/Resolved]
  - Stomatitis [Recovered/Resolved]
  - Groin pain [Unknown]
  - Neutrophil count decreased [Recovered/Resolved]
  - Malaise [Recovered/Resolved]
  - Dry skin [Unknown]
  - Pigmentation disorder [Unknown]
  - Alanine aminotransferase increased [Recovered/Resolved]
  - Oral herpes [Unknown]

NARRATIVE: CASE EVENT DATE: 20160808
